FAERS Safety Report 18524672 (Version 1)
Quarter: 2020Q4

REPORT INFORMATION
  Report Type: Spontaneous
  Country: US (occurrence: US)
  Receive Date: 20201120
  Receipt Date: 20201120
  Transmission Date: 20210114
  Serious: Yes (Other)
  Sender: FDA-Public Use
  Company Number: US-AMGEN-USASP2020185980

PATIENT
  Sex: Female

DRUGS (1)
  1. PROLIA [Suspect]
     Active Substance: DENOSUMAB
     Indication: PRODUCT USED FOR UNKNOWN INDICATION
     Dosage: (ONES YEAR)
     Route: 065

REACTIONS (6)
  - Sinusitis [Unknown]
  - Ear infection [Unknown]
  - Urinary tract infection [Unknown]
  - Intentional product misuse [Unknown]
  - Gastric disorder [Unknown]
  - Kidney infection [Unknown]
